FAERS Safety Report 21368412 (Version 1)
Quarter: 2022Q3

REPORT INFORMATION
  Report Type: Spontaneous
  Country: US (occurrence: US)
  Receive Date: 20220923
  Receipt Date: 20220923
  Transmission Date: 20221027
  Serious: Yes (Death, Life-Threatening, Hospitalization, Congenital Anomaly, Other)
  Sender: FDA-Public Use
  Company Number: US-MLMSERVICE-20220907-3782651-1

PATIENT
  Age: 65 Year
  Sex: Female

DRUGS (14)
  1. METRONIDAZOLE [Suspect]
     Active Substance: METRONIDAZOLE
     Indication: Disseminated tuberculosis
     Dosage: UNK
     Route: 065
  2. METRONIDAZOLE [Suspect]
     Active Substance: METRONIDAZOLE
     Indication: Clostridium difficile colitis
  3. PREDNISONE [Suspect]
     Active Substance: PREDNISONE
     Indication: Immunosuppressant drug therapy
     Dosage: UNK
     Route: 065
  4. BASILIXIMAB [Suspect]
     Active Substance: BASILIXIMAB
     Indication: Immunosuppressant drug therapy
     Dosage: UNK, ON DAY 0 AND DAY 4
     Route: 065
  5. ETHAMBUTOL [Suspect]
     Active Substance: ETHAMBUTOL HYDROCHLORIDE
     Indication: Disseminated tuberculosis
     Dosage: UNK
     Route: 065
  6. ETHAMBUTOL [Suspect]
     Active Substance: ETHAMBUTOL HYDROCHLORIDE
     Indication: Clostridium difficile colitis
  7. ISONIAZID [Suspect]
     Active Substance: ISONIAZID
     Indication: Disseminated tuberculosis
     Dosage: UNK
     Route: 065
  8. ISONIAZID [Suspect]
     Active Substance: ISONIAZID
     Indication: Clostridium difficile colitis
  9. MYCOPHENOLIC ACID [Suspect]
     Active Substance: MYCOPHENOLIC ACID
     Indication: Immunosuppressant drug therapy
     Dosage: UNK
     Route: 065
  10. PYRAZINAMIDE [Suspect]
     Active Substance: PYRAZINAMIDE
     Indication: Disseminated tuberculosis
     Dosage: UNK
     Route: 065
  11. PYRAZINAMIDE [Suspect]
     Active Substance: PYRAZINAMIDE
     Indication: Clostridium difficile colitis
  12. RIFAMPIN [Suspect]
     Active Substance: RIFAMPIN
     Indication: Disseminated tuberculosis
     Dosage: UNK
     Route: 065
  13. RIFAMPIN [Suspect]
     Active Substance: RIFAMPIN
     Indication: Clostridium difficile colitis
  14. TACROLIMUS [Suspect]
     Active Substance: TACROLIMUS
     Indication: Immunosuppressant drug therapy
     Dosage: UNK
     Route: 065

REACTIONS (6)
  - Disseminated tuberculosis [Fatal]
  - Mastitis bacterial [Fatal]
  - Bacteraemia [Fatal]
  - Infectious pleural effusion [Fatal]
  - Pancreatitis haemorrhagic [Fatal]
  - Distributive shock [Fatal]
